FAERS Safety Report 10505013 (Version 1)
Quarter: 2014Q3

REPORT INFORMATION
  Report Type: Spontaneous
  Country: US (occurrence: None)
  Receive Date: 20140915
  Receipt Date: 20140915
  Transmission Date: 20150326
  Serious: Yes (Other)
  Sender: FDA-Public Use
  Company Number: PHEH2013US020165

PATIENT
  Age: 60 Year
  Sex: Female

DRUGS (13)
  1. CARDIZEM [Suspect]
     Active Substance: DILTIAZEM HYDROCHLORIDE
     Dosage: UNK
  2. PROCARDIA [Suspect]
     Active Substance: NIFEDIPINE
     Dosage: UNK UKN
  3. DOCUSATE SODIUM. [Concomitant]
     Active Substance: DOCUSATE SODIUM
  4. ASPIRIN. [Concomitant]
     Active Substance: ASPIRIN
  5. REGLAN [Concomitant]
     Active Substance: METOCLOPRAMIDE HYDROCHLORIDE
  6. NEXIUM [Concomitant]
     Active Substance: ESOMEPRAZOLE MAGNESIUM
  7. METFORMIN [Concomitant]
     Active Substance: METFORMIN HYDROCHLORIDE
  8. TEKTURNA [Suspect]
     Active Substance: ALISKIREN HEMIFUMARATE
  9. VITAMIN D3 [Concomitant]
     Active Substance: CHOLECALCIFEROL
  10. CARVEDILOL. [Concomitant]
     Active Substance: CARVEDILOL
  11. POTASSIUM [Concomitant]
     Active Substance: POTASSIUM
  12. LASIX (FUROSEMIDE [Concomitant]
  13. DIOVAN [Suspect]
     Active Substance: VALSARTAN
     Dosage: 2DF (160MG) BID
     Dates: start: 2009

REACTIONS (5)
  - Cardiac disorder [None]
  - Blood pressure inadequately controlled [None]
  - Dyspnoea [None]
  - Palpitations [None]
  - Heart rate increased [None]
